FAERS Safety Report 6890249-0 (Version None)
Quarter: 2010Q3

REPORT INFORMATION
  Report Type: 
  Country: None (occurrence: None)
  Receive Date: 20100730
  Receipt Date: 20080912
  Transmission Date: 20110219
  Serious: No
  Sender: FDA-Public Use
  Company Number: US-PFIZER INC-2008050207

PATIENT
  Sex: Female
  Weight: 52.272 kg

DRUGS (3)
  1. LIPITOR [Suspect]
     Indication: HIGH DENSITY LIPOPROTEIN
     Route: 048
     Dates: start: 20080401
  2. LIPITOR [Suspect]
     Indication: LOW DENSITY LIPOPROTEIN
  3. EVISTA [Concomitant]

REACTIONS (3)
  - BLOOD POTASSIUM INCREASED [None]
  - OEDEMA PERIPHERAL [None]
  - WRONG TECHNIQUE IN DRUG USAGE PROCESS [None]
